FAERS Safety Report 8600463-1 (Version None)
Quarter: 2012Q3

REPORT INFORMATION
  Report Type: 
  Country: None (occurrence: None)
  Receive Date: 20120817
  Receipt Date: 20120808
  Transmission Date: 20120928
  Serious: Yes (Other)
  Sender: FDA-Public Use
  Company Number: GB-ELI_LILLY_AND_COMPANY-GB201208003128

PATIENT
  Age: 46 Year
  Sex: Male
  Weight: 66.6 kg

DRUGS (11)
  1. DIAZEPAM [Concomitant]
     Dosage: UNK
  2. OMEPRAZOLE [Concomitant]
     Dosage: 40 MG, UNKNOWN
     Route: 048
     Dates: end: 20120625
  3. HYOSCINE HBR HYT [Concomitant]
     Dosage: 300 UG, UNKNOWN
     Dates: end: 20120625
  4. LACTULOSE [Concomitant]
     Indication: CONSTIPATION
     Dosage: 1 DF, UNKNOWN
     Dates: end: 20120625
  5. MOVIPREP [Concomitant]
     Indication: CONSTIPATION
     Dosage: 1 DF, BID
     Route: 048
     Dates: start: 20120627
  6. VALPROIC ACID [Concomitant]
     Dosage: 500 MG, UNKNOWN
     Route: 048
     Dates: end: 20120625
  7. OLANZAPINE [Suspect]
     Dosage: 1 DF, UNKNOWN
  8. CLOZAPINE [Concomitant]
     Dosage: 450 MG, UNKNOWN
     Route: 048
     Dates: start: 20050316, end: 20120626
  9. ACETAMINOPHEN [Concomitant]
     Dosage: 1 G, PRN
     Route: 048
  10. CLOZAPINE [Concomitant]
     Dosage: 1 DF, UNKNOWN
     Dates: start: 19971215, end: 20050316
  11. DIAZEPAM [Concomitant]
     Dosage: 5 MG, QID
     Route: 048

REACTIONS (1)
  - CATATONIA [None]
